FAERS Safety Report 24802107 (Version 1)
Quarter: 2025Q1

REPORT INFORMATION
  Report Type: Spontaneous
  Country: ZA (occurrence: ZA)
  Receive Date: 20250103
  Receipt Date: 20250103
  Transmission Date: 20250409
  Serious: Yes (Death, Other)
  Sender: Kenvue
  Company Number: ZA-KENVUE-20241208557

PATIENT

DRUGS (2)
  1. ACETAMINOPHEN [Suspect]
     Active Substance: ACETAMINOPHEN
     Indication: Accidental exposure to product
     Route: 048
  2. ACETAMINOPHEN [Suspect]
     Active Substance: ACETAMINOPHEN
     Indication: Product used for unknown indication

REACTIONS (7)
  - Acute kidney injury [Fatal]
  - Drug-induced liver injury [Fatal]
  - Hepatotoxicity [Fatal]
  - Poisoning [Fatal]
  - Toxicity to various agents [Fatal]
  - Intentional overdose [Fatal]
  - Accidental overdose [Fatal]
